FAERS Safety Report 6285926-9 (Version None)
Quarter: 2009Q3

REPORT INFORMATION
  Report Type: 
  Country: None (occurrence: None)
  Receive Date: 20090728
  Receipt Date: 20090127
  Transmission Date: 20100115
  Serious: No
  Sender: FDA-Public Use
  Company Number: A0766664A

PATIENT
  Age: 81 Year
  Sex: Female

DRUGS (5)
  1. DYAZIDE [Suspect]
     Indication: HYPERTENSION
     Dosage: 25MG PER DAY
     Route: 048
  2. HUMIRA [Suspect]
     Indication: PSORIASIS
     Dosage: 40ML EVERY TWO WEEKS
     Route: 058
     Dates: start: 20080201
  3. MULTI-VITAMIN [Concomitant]
  4. ACETYLSALICYLIC ACID [Concomitant]
     Dosage: 81MG PER DAY
  5. CALCIUM [Concomitant]
     Indication: OSTEOPOROSIS

REACTIONS (1)
  - DIZZINESS [None]
